FAERS Safety Report 8334090 (Version 2)
Quarter: 2013Q4

REPORT INFORMATION
  Report Type: Spontaneous
  Country: US (occurrence: US)
  Receive Date: 20120112
  Receipt Date: 20131202
  Transmission Date: 20140711
  Serious: Yes (Other)
  Sender: FDA-Public Use
  Company Number: US-ROCHE-793702

PATIENT
  Age: 15 Year
  Sex: Male
  Weight: 79.9 kg

DRUGS (1)
  1. ACCUTANE [Suspect]
     Indication: ACNE CYSTIC
     Route: 065
     Dates: start: 19990901, end: 20000630

REACTIONS (10)
  - Crohn^s disease [Unknown]
  - Inflammatory bowel disease [Unknown]
  - Anxiety [Unknown]
  - Nasal dryness [Unknown]
  - Epistaxis [Unknown]
  - Cheilitis [Unknown]
  - Arthralgia [Unknown]
  - Dry skin [Unknown]
  - Blood triglycerides increased [Unknown]
  - Acne [Unknown]
